FAERS Safety Report 7717675-1 (Version None)
Quarter: 2011Q3

REPORT INFORMATION
  Report Type: 
  Country: None (occurrence: None)
  Receive Date: 20110830
  Receipt Date: 20110830
  Transmission Date: 20111222
  Serious: Yes (Life-Threatening, Hospitalization, Other)
  Sender: FDA-Public Use
  Company Number: None

PATIENT
  Age: 27 Year
  Sex: Male
  Weight: 86.182 kg

DRUGS (1)
  1. NICOTINE [Suspect]

REACTIONS (8)
  - MALAISE [None]
  - NAUSEA [None]
  - LETHARGY [None]
  - WHITE BLOOD CELL COUNT INCREASED [None]
  - INFLUENZA LIKE ILLNESS [None]
  - EPISTAXIS [None]
  - RHINORRHOEA [None]
  - VOMITING [None]
